FAERS Safety Report 8924731 (Version 1)
Quarter: 2012Q4

REPORT INFORMATION
  Report Type: 
  Country: GB (occurrence: GB)
  Receive Date: 20121126
  Receipt Date: 20121126
  Transmission Date: 20130627
  Serious: Yes (Other)
  Sender: FDA-Public Use
  Company Number: GB-TEVA-371090ISR

PATIENT
  Age: 37 Year
  Sex: Female

DRUGS (4)
  1. METRONIDAZOLE [Suspect]
     Dosage: 800 Milligram Daily;
     Route: 048
     Dates: start: 20121026, end: 20121101
  2. YASMIN [Concomitant]
  3. LEVOTHYROXINE [Concomitant]
  4. TRIMETHOPRIM [Concomitant]

REACTIONS (7)
  - Hangover [Not Recovered/Not Resolved]
  - Chromaturia [Not Recovered/Not Resolved]
  - Thirst [Not Recovered/Not Resolved]
  - Rash [Not Recovered/Not Resolved]
  - Tongue disorder [Not Recovered/Not Resolved]
  - Headache [Not Recovered/Not Resolved]
  - Poor quality sleep [Unknown]
